FAERS Safety Report 8932738 (Version 1)
Quarter: 2013Q1

REPORT INFORMATION
  Report Type: Spontaneous
  Country: US (occurrence: None)
  Receive Date: 20121126
  Receipt Date: 20121126
  Transmission Date: 20140127
  Serious: Yes (Hospitalization)
  Sender: FDA-Public Use
  Company Number: None

PATIENT
  Age: 51 Year
  Sex: Male
  Weight: 82.1 kg

DRUGS (15)
  1. IRINOTECAN [Suspect]
     Indication: PANCREATIC CARCINOMA
     Dates: start: 20121115
  2. LEUCOVORIN [Suspect]
     Indication: PANCREATIC CARCINOMA
     Dosage: 784 MG
     Dates: start: 20121115
  3. OXALIPLATIN [Suspect]
     Indication: PANCREATIC CARCINOMA
     Dosage: 167MG
     Dates: start: 20121115
  4. 5-FU [Suspect]
     Indication: PANCREATIC CARCINOMA
     Dosage: 4704 MG CIVI
     Dates: start: 20121115
  5. PF-04136309 [Suspect]
     Dosage: STARTED ON 11/15/12 WITH A SINGLE DOSE (500MG).
     Dates: start: 20121115
  6. COUMADIN [Concomitant]
  7. CYCLOBENZAPRINE [Concomitant]
  8. METFORMIN [Concomitant]
  9. MIRALAX [Concomitant]
  10. NICOTINE PATCH [Concomitant]
  11. OXYCODONE [Concomitant]
  12. PROCHLORPERAZINE [Concomitant]
  13. COLACE [Concomitant]
  14. INSULIN [Concomitant]
  15. PERCOCET [Concomitant]

REACTIONS (2)
  - Abdominal pain [None]
  - Diarrhoea [None]
